FAERS Safety Report 23024610 (Version 6)
Quarter: 2024Q1

REPORT INFORMATION
  Report Type: Spontaneous
  Country: JP (occurrence: None)
  Receive Date: 20231004
  Receipt Date: 20240313
  Transmission Date: 20240410
  Serious: Yes (Hospitalization, Disabling)
  Sender: FDA-Public Use
  Company Number: 2023A222206

PATIENT
  Age: 76 Year
  Sex: Male
  Weight: 70 kg

DRUGS (4)
  1. ONDEXXYA [Suspect]
     Active Substance: ANDEXANET ALFA
     Indication: Putamen haemorrhage
     Dosage: 880.0MG UNKNOWN
     Route: 042
     Dates: start: 20230428, end: 20230428
  2. ELIQUIS [Suspect]
     Active Substance: APIXABAN
     Indication: Atrial fibrillation
     Route: 048
  3. ELIQUIS [Suspect]
     Active Substance: APIXABAN
     Indication: Atrial fibrillation
     Dosage: DOSE UNKNOWN
     Route: 048
     Dates: start: 20230506, end: 20230510
  4. AMLODIPINE [Concomitant]
     Active Substance: AMLODIPINE BESYLATE
     Indication: Hypertension
     Route: 048

REACTIONS (2)
  - Melaena [Recovered/Resolved]
  - Cerebral infarction [Recovered/Resolved with Sequelae]

NARRATIVE: CASE EVENT DATE: 20230430
